FAERS Safety Report 25012690 (Version 2)
Quarter: 2025Q2

REPORT INFORMATION
  Report Type: Spontaneous
  Country: CA (occurrence: CA)
  Receive Date: 20250226
  Receipt Date: 20250402
  Transmission Date: 20250717
  Serious: Yes (Other)
  Sender: TAKEDA
  Company Number: CA-TAKEDA-2025TUS016514

PATIENT
  Age: 43 Year
  Sex: Female

DRUGS (5)
  1. GAMMAGARD [Suspect]
     Active Substance: HUMAN IMMUNOGLOBULIN G
     Indication: Cold urticaria
     Dosage: 65 GRAM, Q2WEEKS
  2. DIPHENHYDRAMINE [Suspect]
     Active Substance: DIPHENHYDRAMINE
     Indication: Cold urticaria
  3. KETOTIFEN [Suspect]
     Active Substance: KETOTIFEN
     Indication: Cold urticaria
  4. MONTELUKAST [Suspect]
     Active Substance: MONTELUKAST
     Indication: Cold urticaria
     Dosage: 20 MILLIGRAM, QD
  5. RANITIDINE [Suspect]
     Active Substance: RANITIDINE
     Indication: Cold urticaria
     Dosage: 150 MILLIGRAM, QD

REACTIONS (1)
  - Product ineffective [Unknown]
